FAERS Safety Report 7568535-0 (Version None)
Quarter: 2011Q2

REPORT INFORMATION
  Report Type: 
  Country: None (occurrence: None)
  Receive Date: 20110623
  Receipt Date: 20110616
  Transmission Date: 20111010
  Serious: Yes (Hospitalization)
  Sender: FDA-Public Use
  Company Number: CH-PFIZER INC-2011132039

PATIENT
  Age: 34 Year
  Sex: Female

DRUGS (4)
  1. SULFASALAZINE [Suspect]
     Indication: POLYARTHRITIS
     Dosage: 500 MG, 1X/DAY
     Route: 048
     Dates: start: 20110513, end: 20110520
  2. SULFASALAZINE [Suspect]
     Dosage: 500 MG, 3X/DAY
     Route: 048
     Dates: start: 20110529, end: 20110604
  3. CLARITHROMYCIN [Suspect]
     Dosage: 250 MG, 2X/DAY
     Route: 048
     Dates: start: 20110520, end: 20110501
  4. SULFASALAZINE [Suspect]
     Dosage: 500 MG, 2X/DAY
     Route: 048
     Dates: start: 20110521, end: 20110528

REACTIONS (11)
  - KERATITIS [None]
  - MOUTH ULCERATION [None]
  - PUNCTATE KERATITIS [None]
  - DYSPHAGIA [None]
  - PYREXIA [None]
  - PHOTOSENSITIVITY REACTION [None]
  - RHINITIS [None]
  - PROCTALGIA [None]
  - PRURITUS [None]
  - STEVENS-JOHNSON SYNDROME [None]
  - GENITAL ULCERATION [None]
